FAERS Safety Report 18670199 (Version 1)
Quarter: 2020Q4

REPORT INFORMATION
  Report Type: Spontaneous
  Country: PA (occurrence: PA)
  Receive Date: 20201228
  Receipt Date: 20201228
  Transmission Date: 20210114
  Serious: Yes (Other)
  Sender: FDA-Public Use
  Company Number: PA-PFIZER INC-2020181031

PATIENT
  Age: 65 Year
  Sex: Female

DRUGS (1)
  1. SUTENT [Suspect]
     Active Substance: SUNITINIB MALATE
     Dosage: UNK
     Dates: end: 202001

REACTIONS (11)
  - Weight increased [Unknown]
  - Anal ulcer [Unknown]
  - Negative thoughts [Unknown]
  - Vaginal ulceration [Unknown]
  - Stomatitis [Unknown]
  - Throat lesion [Unknown]
  - Depressed mood [Unknown]
  - Nausea [Unknown]
  - Oral pain [Unknown]
  - Pharyngeal ulceration [Unknown]
  - Mouth ulceration [Unknown]
